FAERS Safety Report 5090166-5 (Version None)
Quarter: 2006Q3

REPORT INFORMATION
  Report Type: 
  Country: None (occurrence: None)
  Receive Date: 20060828
  Receipt Date: 20060616
  Transmission Date: 20061208
  Serious: Yes (Other)
  Sender: FDA-Public Use
  Company Number: PHFR2006GB02021

PATIENT
  Age: 61 Year
  Sex: Female

DRUGS (3)
  1. DIOVAN [Suspect]
     Indication: HYPERTENSION
     Dosage: 80MG.DAY
     Route: 048
     Dates: start: 20060401
  2. ASPIRIN [Concomitant]
     Indication: HYPERTENSION
     Dosage: 75 MG/DAY
     Route: 048
     Dates: start: 20060401
  3. BENDROFLUAZIDE [Concomitant]
     Indication: HYPERTENSION
     Dosage: 2.5 MG/DAY
     Dates: start: 20060401

REACTIONS (1)
  - JAUNDICE [None]
